FAERS Safety Report 9856308 (Version 3)
Quarter: 2014Q4

REPORT INFORMATION
  Report Type: Spontaneous
  Country: US (occurrence: US)
  Receive Date: 20140130
  Receipt Date: 20141014
  Transmission Date: 20150529
  Serious: Yes (Hospitalization, Other)
  Sender: FDA-Public Use
  Company Number: US-009507513-1401USA013573

PATIENT
  Sex: Female

DRUGS (1)
  1. NUVARING [Suspect]
     Active Substance: ETHINYL ESTRADIOL\ETONOGESTREL
     Route: 067

REACTIONS (9)
  - Pulmonary mass [Unknown]
  - Pulmonary embolism [Unknown]
  - Intervertebral disc operation [Unknown]
  - Intervertebral disc degeneration [Unknown]
  - Intervertebral disc operation [Unknown]
  - Gastrooesophageal reflux disease [Unknown]
  - Mammoplasty [Unknown]
  - Thrombophlebitis superficial [Unknown]
  - Deep vein thrombosis [Unknown]

NARRATIVE: CASE EVENT DATE: 2007
